FAERS Safety Report 21436678 (Version 1)
Quarter: 2022Q4

REPORT INFORMATION
  Report Type: Spontaneous
  Country: US (occurrence: US)
  Receive Date: 20221010
  Receipt Date: 20221010
  Transmission Date: 20230113
  Serious: No
  Sender: FDA-Public Use
  Company Number: US-BRISTOL-MYERS SQUIBB COMPANY-2022-112527

PATIENT
  Age: 45 Year
  Sex: Male
  Weight: 86.18 kg

DRUGS (3)
  1. ZEPOSIA [Suspect]
     Active Substance: OZANIMOD HYDROCHLORIDE
     Indication: Colitis ulcerative
     Route: 048
     Dates: start: 2022
  2. MELOXICAM [Concomitant]
     Active Substance: MELOXICAM
     Route: 065
  3. PRILOSEC [Concomitant]
     Active Substance: OMEPRAZOLE MAGNESIUM
     Dosage: DOSE: TWO PER DAY.
     Route: 065

REACTIONS (8)
  - Visual impairment [Unknown]
  - Headache [Unknown]
  - Nausea [Unknown]
  - Balance disorder [Unknown]
  - Dizziness [Unknown]
  - Pain [Unknown]
  - Feeling abnormal [Unknown]
  - Memory impairment [Unknown]

NARRATIVE: CASE EVENT DATE: 20220925
